FAERS Safety Report 8550457 (Version 4)
Quarter: 2013Q3

REPORT INFORMATION
  Report Type: Spontaneous
  Country: US (occurrence: US)
  Receive Date: 20120508
  Receipt Date: 20130710
  Transmission Date: 20140515
  Serious: Yes (Hospitalization, Other)
  Sender: FDA-Public Use
  Company Number: US-ASTRAZENECA-2012SE27859

PATIENT
  Age: 58 Year
  Sex: Male

DRUGS (6)
  1. NEXIUM [Suspect]
     Indication: GASTROOESOPHAGEAL REFLUX DISEASE
     Route: 048
     Dates: start: 200804, end: 201009
  2. KAPIDEX [Suspect]
     Indication: GASTROOESOPHAGEAL REFLUX DISEASE
     Route: 065
     Dates: start: 200804, end: 201009
  3. PREVACID [Suspect]
     Indication: GASTROOESOPHAGEAL REFLUX DISEASE
     Route: 065
     Dates: start: 200804, end: 201009
  4. ZEGERID [Suspect]
     Indication: GASTROOESOPHAGEAL REFLUX DISEASE
     Route: 065
     Dates: start: 200804, end: 201009
  5. ACIPHEX [Suspect]
     Indication: GASTROOESOPHAGEAL REFLUX DISEASE
     Route: 065
     Dates: start: 200804, end: 201009
  6. ZANTAC [Concomitant]
     Dates: start: 201009

REACTIONS (14)
  - Heart rate irregular [Unknown]
  - Fatigue [Unknown]
  - Renal failure acute [Unknown]
  - Extrasystoles [Unknown]
  - Muscle spasms [Unknown]
  - Hypomagnesaemia [Unknown]
  - Dizziness [Unknown]
  - Confusional state [Unknown]
  - Pain [Unknown]
  - Emotional distress [Unknown]
  - Gastritis erosive [Unknown]
  - Erosive oesophagitis [Unknown]
  - Gastritis [Unknown]
  - Bowel movement irregularity [Unknown]
